FAERS Safety Report 7402641-6 (Version None)
Quarter: 2011Q2

REPORT INFORMATION
  Report Type: 
  Country: None (occurrence: None)
  Receive Date: 20110408
  Receipt Date: 20110404
  Transmission Date: 20111010
  Serious: No
  Sender: FDA-Public Use
  Company Number: US-PFIZER INC-2011074771

PATIENT
  Sex: Female
  Weight: 59 kg

DRUGS (4)
  1. PREMARIN [Suspect]
     Indication: OFF LABEL USE
  2. PREMARIN [Suspect]
     Indication: VULVOVAGINAL DISCOMFORT
  3. PREMARIN [Suspect]
     Indication: POSTMENOPAUSAL HAEMORRHAGE
  4. PREMARIN [Suspect]
     Indication: VULVOVAGINAL DRYNESS
     Dosage: UNK, 2X/WEEK
     Route: 067
     Dates: start: 20040101

REACTIONS (2)
  - DRUG INEFFECTIVE [None]
  - INCORRECT DOSE ADMINISTERED [None]
